FAERS Safety Report 5315989-6 (Version None)
Quarter: 2007Q2

REPORT INFORMATION
  Report Type: 
  Country: None (occurrence: None)
  Receive Date: 20070503
  Receipt Date: 20070419
  Transmission Date: 20071010
  Serious: Yes (Other)
  Sender: FDA-Public Use
  Company Number: JP-ROCHE-490126

PATIENT
  Age: 38 Year
  Sex: Female
  Weight: 64 kg

DRUGS (3)
  1. TAMIFLU [Suspect]
     Indication: INFLUENZA
     Route: 048
     Dates: start: 20070315, end: 20070315
  2. TRIAZOLAM [Concomitant]
     Dosage: DRUG NAME REPORTED AS MINZAIN.
     Dates: start: 20070315
  3. PL [Concomitant]
     Route: 048
     Dates: start: 20070315

REACTIONS (1)
  - SELF-INJURIOUS IDEATION [None]
